FAERS Safety Report 9147801 (Version 2)
Quarter: 2013Q2

REPORT INFORMATION
  Report Type: Spontaneous
  Country: US (occurrence: US)
  Receive Date: 20130307
  Receipt Date: 20130515
  Transmission Date: 20140414
  Serious: No
  Sender: FDA-Public Use
  Company Number: US-009507513-1303USA001664

PATIENT
  Age: 46 Year
  Sex: Female
  Weight: 63.76 kg

DRUGS (2)
  1. JANUVIA [Suspect]
     Indication: TYPE 2 DIABETES MELLITUS
     Dosage: 100 MG, QD
     Route: 048
     Dates: start: 20130227, end: 20130301
  2. MEVACOR TABLET [Concomitant]
     Dosage: UNK

REACTIONS (4)
  - Chest pain [Recovering/Resolving]
  - Malaise [Unknown]
  - Headache [Recovering/Resolving]
  - Dizziness [Recovering/Resolving]
